FAERS Safety Report 7780073-9 (Version None)
Quarter: 2011Q3

REPORT INFORMATION
  Report Type: 
  Country: None (occurrence: None)
  Receive Date: 20110927
  Receipt Date: 20110427
  Transmission Date: 20111222
  Serious: No
  Sender: FDA-Public Use
  Company Number: US-ASTRAZENECA-2011SE25253

PATIENT
  Age: 52 Year
  Sex: Female

DRUGS (4)
  1. SEROQUEL [Suspect]
     Route: 048
     Dates: start: 20110401
  2. CELEXA [Concomitant]
     Indication: STRESS
  3. LISINOPRIL [Concomitant]
     Indication: HYPERTENSION
  4. SEROQUEL [Suspect]
     Indication: ANXIETY DISORDER
     Route: 048

REACTIONS (9)
  - PAIN [None]
  - DRUG DOSE OMISSION [None]
  - ANXIETY DISORDER [None]
  - SLEEP DISORDER DUE TO GENERAL MEDICAL CONDITION, INSOMNIA TYPE [None]
  - ANXIETY [None]
  - FIBROMYALGIA [None]
  - TACHYPHRENIA [None]
  - DYSURIA [None]
  - INSOMNIA [None]
